FAERS Safety Report 17954090 (Version 2)
Quarter: 2020Q3

REPORT INFORMATION
  Report Type: Spontaneous
  Country: AU (occurrence: AU)
  Receive Date: 20200629
  Receipt Date: 20200702
  Transmission Date: 20201103
  Serious: Yes (Other)
  Sender: FDA-Public Use
  Company Number: AU-AMGEN-AUSSP2020092217

PATIENT
  Age: 63 Year
  Sex: Female

DRUGS (1)
  1. PROLIA [Suspect]
     Active Substance: DENOSUMAB
     Indication: OSTEOPENIA
     Dosage: 60 MILLIGRAM, Q6MO (INTO STOMACH)
     Route: 058
     Dates: start: 202004

REACTIONS (22)
  - Abdominal distension [Not Recovered/Not Resolved]
  - Blood parathyroid hormone increased [Unknown]
  - Hepatitis [Unknown]
  - Gastric disorder [Recovered/Resolved]
  - Weight increased [Not Recovered/Not Resolved]
  - Skin lesion [Unknown]
  - Blood cholesterol increased [Unknown]
  - Depression [Not Recovered/Not Resolved]
  - Discoloured vomit [Recovered/Resolved]
  - Pain [Unknown]
  - Swelling face [Unknown]
  - Peripheral swelling [Unknown]
  - Blister [Unknown]
  - Sleep disorder due to a general medical condition [Unknown]
  - Blood calcium increased [Unknown]
  - Back pain [Unknown]
  - Constipation [Unknown]
  - Dyspepsia [Unknown]
  - Alopecia [Not Recovered/Not Resolved]
  - Arthralgia [Unknown]
  - Gait disturbance [Unknown]
  - Off label use [Unknown]

NARRATIVE: CASE EVENT DATE: 2020
